FAERS Safety Report 4278028-4 (Version None)
Quarter: 2004Q1

REPORT INFORMATION
  Report Type: 
  Country: None (occurrence: None)
  Receive Date: 20040121
  Receipt Date: 20040109
  Transmission Date: 20041129
  Serious: Yes (Hospitalization, Other)
  Sender: FDA-Public Use
  Company Number: 2003117731

PATIENT
  Age: 68 Year
  Sex: Male

DRUGS (2)
  1. LIPITOR [Suspect]
     Indication: BLOOD CHOLESTEROL
     Dosage: 40 MG (DAILY), ORAL
     Route: 048
  2. DILTIAZEM HYDROCHLORIDE [Concomitant]

REACTIONS (5)
  - BLOOD CHOLESTEROL INCREASED [None]
  - BONE PAIN [None]
  - DIABETES MELLITUS [None]
  - INGUINAL HERNIA [None]
  - WEIGHT DECREASED [None]
